FAERS Safety Report 4502053-9 (Version None)
Quarter: 2004Q4

REPORT INFORMATION
  Report Type: 
  Country: None (occurrence: None)
  Receive Date: 20041116
  Receipt Date: 20041105
  Transmission Date: 20050328
  Serious: Yes (Hospitalization)
  Sender: FDA-Public Use
  Company Number: US-MERCK-0411USA00904

PATIENT
  Sex: Female

DRUGS (5)
  1. DECADRON [Suspect]
     Indication: CHEMOTHERAPY
     Route: 048
  2. DECADRON [Suspect]
     Route: 048
  3. KYTRIL [Concomitant]
     Route: 065
  4. COMPAZINE [Concomitant]
     Route: 065
  5. DECADRON [Concomitant]
     Indication: CHEMOTHERAPY
     Route: 042

REACTIONS (1)
  - DIZZINESS [None]
